FAERS Safety Report 9617540 (Version 4)
Quarter: 2013Q4

REPORT INFORMATION
  Report Type: Spontaneous
  Country: HK (occurrence: HK)
  Receive Date: 20131011
  Receipt Date: 20131212
  Transmission Date: 20140711
  Serious: Yes (Life-Threatening, Hospitalization, Disabling, Other)
  Sender: FDA-Public Use
  Company Number: HK-GLAXOSMITHKLINE-B0929387A

PATIENT
  Age: 56 Year
  Sex: Female
  Weight: 75.5 kg

DRUGS (4)
  1. REVOLADE [Suspect]
     Indication: IMMUNE THROMBOCYTOPENIC PURPURA
     Dosage: 25MG PER DAY
     Route: 048
     Dates: start: 20130327, end: 20131003
  2. PREDNISONE [Concomitant]
     Dosage: 10MG PER DAY
     Route: 048
     Dates: start: 20130530
  3. CALTRATE [Concomitant]
     Dosage: 600MG TWICE PER DAY
     Route: 048
     Dates: start: 20130530
  4. ROCALTROL [Concomitant]
     Dosage: .25MCG PER DAY
     Route: 048
     Dates: start: 20130110

REACTIONS (8)
  - Renal impairment [Recovered/Resolved]
  - Renal failure acute [Unknown]
  - Acute myocardial infarction [Not Recovered/Not Resolved]
  - Chest pain [Unknown]
  - Blood creatine phosphokinase increased [Unknown]
  - Troponin increased [Unknown]
  - Blood creatinine increased [Recovered/Resolved]
  - Platelet count decreased [Unknown]
